FAERS Safety Report 8203996-5 (Version None)
Quarter: 2012Q1

REPORT INFORMATION
  Report Type: 
  Country: None (occurrence: None)
  Receive Date: 20120313
  Receipt Date: 20120307
  Transmission Date: 20120608
  Serious: Yes (Other)
  Sender: FDA-Public Use
  Company Number: US-PFIZER INC-2012062294

PATIENT
  Sex: Female
  Weight: 104 kg

DRUGS (1)
  1. SUTENT [Suspect]
     Indication: METASTATIC RENAL CELL CARCINOMA
     Dosage: 50 MG (TWO CAPSULES OF 25 MG), 1X/DAY, 4 WEEKS ON/2 WEEKS OFF
     Route: 048
     Dates: start: 20120210

REACTIONS (5)
  - FATIGUE [None]
  - NAUSEA [None]
  - ORAL PAIN [None]
  - DYSGEUSIA [None]
  - BLOOD PRESSURE INCREASED [None]
